FAERS Safety Report 7228606-5 (Version None)
Quarter: 2011Q1

REPORT INFORMATION
  Report Type: 
  Country: None (occurrence: None)
  Receive Date: 20110117
  Receipt Date: 20110106
  Transmission Date: 20110831
  Serious: No
  Sender: FDA-Public Use
  Company Number: US-BIOGENIDEC-2010BI043453

PATIENT
  Sex: Female

DRUGS (2)
  1. TYSABRI [Suspect]
     Indication: MULTIPLE SCLEROSIS
     Route: 042
     Dates: start: 20071017
  2. PAIN MEDICATION (NOS) [Concomitant]
     Indication: BACK PAIN
     Route: 048

REACTIONS (4)
  - FIBROMYALGIA [None]
  - BACK DISORDER [None]
  - NEUROMA [None]
  - MIGRAINE [None]
